FAERS Safety Report 7966204-6 (Version None)
Quarter: 2011Q4

REPORT INFORMATION
  Report Type: 
  Country: None (occurrence: None)
  Receive Date: 20111208
  Receipt Date: 20111128
  Transmission Date: 20120403
  Serious: Yes (Other)
  Sender: FDA-Public Use
  Company Number: PHEH2011US02945

PATIENT
  Sex: Female

DRUGS (2)
  1. SANDOSTATIN [Suspect]
     Dosage: 100 UG, TID
     Route: 058
     Dates: start: 20110818, end: 20110821
  2. SANDOSTATIN LAR [Suspect]
     Dosage: UNK UKN, UNK

REACTIONS (4)
  - NEOPLASM [None]
  - DIABETIC COMA [None]
  - BLOOD GLUCOSE DECREASED [None]
  - UNRESPONSIVE TO STIMULI [None]
